FAERS Safety Report 8974580 (Version 2)
Quarter: 2013Q2

REPORT INFORMATION
  Report Type: Spontaneous
  Country: CA (occurrence: CA)
  Receive Date: 20121220
  Receipt Date: 20130420
  Transmission Date: 20140414
  Serious: Yes (Other)
  Sender: FDA-Public Use
  Company Number: CA-ABBOTT-12P-028-1022292-00

PATIENT
  Age: 19 Year
  Sex: Female
  Weight: 54 kg

DRUGS (2)
  1. BIAXIN XL [Suspect]
     Indication: SINUSITIS
     Route: 048
     Dates: start: 20120303, end: 20120304
  2. CYESTRA-35 [Concomitant]
     Indication: ACNE

REACTIONS (15)
  - Anxiety [Recovered/Resolved]
  - Disturbance in attention [Recovered/Resolved]
  - Tachyphrenia [Recovered/Resolved]
  - Palpitations [Recovered/Resolved]
  - Insomnia [Recovered/Resolved]
  - Thinking abnormal [Recovered/Resolved]
  - Tremor [Recovered/Resolved]
  - Wrong technique in drug usage process [Recovered/Resolved]
  - Feeling abnormal [Recovered/Resolved]
  - Self esteem decreased [Recovered/Resolved]
  - Self-injurious ideation [Recovered/Resolved]
  - Emotional poverty [Recovered/Resolved]
  - Incorrect dose administered [Unknown]
  - Affect lability [Recovered/Resolved]
  - Confusional state [Recovered/Resolved]
